FAERS Safety Report 8539724 (Version 2)
Quarter: 2012Q4

REPORT INFORMATION
  Report Type: 
  Country: US (occurrence: US)
  Receive Date: 20120502
  Receipt Date: 20120926
  Transmission Date: 20130627
  Serious: Yes (Hospitalization)
  Sender: FDA-Public Use
  Company Number: US-BAYER-2012-041577

PATIENT
  Age: 21 Year
  Sex: Female
  Weight: 54 kg

DRUGS (7)
  1. YAZ [Suspect]
     Indication: CONTRACEPTION
     Dosage: UNK
     Dates: start: 200507
  2. YASMIN [Suspect]
     Indication: CONTRACEPTION
     Dosage: UNK
     Dates: start: 200507
  3. FISH OIL [Concomitant]
     Dosage: UNK, 2 daily
     Dates: start: 2002, end: 2011
  4. TYLENOL [Concomitant]
     Indication: HEADACHE
     Dosage: UNK UNK, As needed
     Dates: start: 2002, end: 2012
  5. TYLENOL [Concomitant]
     Indication: BACK PAIN
  6. MULTI-VITAMIN [Concomitant]
     Indication: VITAMIN SUPPLEMENTATION
     Dosage: UNK, Daily
     Dates: start: 2002, end: 2012
  7. BABY ASPIRIN [Concomitant]
     Indication: CEREBROVASCULAR ACCIDENT PROPHYLAXIS
     Dosage: UNK, daily

REACTIONS (8)
  - Cerebrovascular accident [None]
  - Injury [None]
  - Pain [None]
  - Emotional distress [None]
  - Cerebral thrombosis [None]
  - Hemiparesis [None]
  - Mental disorder [None]
  - Anxiety disorder [None]
